FAERS Safety Report 9661597 (Version 2)
Quarter: 2013Q4

REPORT INFORMATION
  Report Type: Spontaneous
  Country: US (occurrence: US)
  Receive Date: 20131031
  Receipt Date: 20131031
  Transmission Date: 20140711
  Serious: Yes (Other)
  Sender: FDA-Public Use
  Company Number: US-NAPPMUNDI-USA-2010-0055462

PATIENT
  Age: 64 Year
  Sex: Female
  Weight: 76.19 kg

DRUGS (1)
  1. OXYCONTIN (NDA 22-272) [Suspect]
     Indication: NEURALGIA
     Dosage: 10 MG, 2-3 TIMES DAILY
     Route: 048
     Dates: start: 20101115, end: 20101117

REACTIONS (6)
  - Depression [Recovered/Resolved]
  - Tearfulness [Recovered/Resolved]
  - Oral discomfort [Unknown]
  - Abdominal pain [Unknown]
  - Discomfort [Unknown]
  - Nausea [Recovered/Resolved]
